FAERS Safety Report 5490293-4 (Version None)
Quarter: 2007Q4

REPORT INFORMATION
  Report Type: 
  Country: None (occurrence: None)
  Receive Date: 20071017
  Receipt Date: 20071009
  Transmission Date: 20080405
  Serious: Yes (Other)
  Sender: FDA-Public Use
  Company Number: 070120

PATIENT
  Age: 56 Year
  Sex: Male

DRUGS (1)
  1. HALFLYTELY [Suspect]
     Indication: COLONOSCOPY

REACTIONS (3)
  - ABDOMINAL PAIN LOWER [None]
  - COLITIS ISCHAEMIC [None]
  - DIARRHOEA [None]
